FAERS Safety Report 19251313 (Version 1)
Quarter: 2021Q2

REPORT INFORMATION
  Report Type: Spontaneous
  Country: UA (occurrence: UA)
  Receive Date: 20210513
  Receipt Date: 20210513
  Transmission Date: 20210717
  Serious: Yes (Other)
  Sender: FDA-Public Use
  Company Number: UA-TEVA-2021-UA-1910933

PATIENT
  Sex: Female

DRUGS (3)
  1. TIGERON [Concomitant]
     Dosage: 1 BLISTER
     Route: 065
  2. NEOTRIZOL [Concomitant]
     Dosage: 3 TABLETS
     Route: 065
  3. FLUCONAZOLE?TEVA [Suspect]
     Active Substance: FLUCONAZOLE
     Indication: CANDIDA INFECTION
     Route: 065

REACTIONS (6)
  - Aphthous ulcer [Unknown]
  - Pharyngeal swelling [Unknown]
  - Drug hypersensitivity [Unknown]
  - Feeding disorder [Unknown]
  - Tongue blistering [Unknown]
  - Aphasia [Unknown]

NARRATIVE: CASE EVENT DATE: 202104
